FAERS Safety Report 8791659 (Version 4)
Quarter: 2012Q4

REPORT INFORMATION
  Report Type: 
  Country: FR (occurrence: FR)
  Receive Date: 20120918
  Receipt Date: 20121221
  Transmission Date: 20130627
  Serious: Yes (Death, Hospitalization)
  Sender: FDA-Public Use
  Company Number: FR-ASTRAZENECA-2012SE72166

PATIENT
  Age: 66 Year
  Sex: Female
  Weight: 83 kg

DRUGS (17)
  1. XEROQUEL [Suspect]
     Indication: PSYCHOTIC DISORDER
     Dosage: DOSE PORGRESSIVELY INCREASED TO 300 MG PER DAY
     Route: 048
     Dates: start: 20120202, end: 20120206
  2. XEROQUEL [Suspect]
     Indication: PSYCHOTIC DISORDER
     Route: 048
     Dates: start: 20120207
  3. ATENOLOL [Concomitant]
  4. LEXOMIL [Concomitant]
  5. PARIET [Concomitant]
     Indication: GASTRITIS
  6. DOLIPRANE [Concomitant]
  7. DEPAMIDE [Concomitant]
  8. SMECTA [Concomitant]
  9. DIAMICRON [Concomitant]
  10. TAREG [Concomitant]
     Indication: HYPERTENSION
  11. PROCTOLOG [Concomitant]
     Dosage: As required
  12. IMOVANE [Concomitant]
     Indication: INSOMNIA
  13. CALCIDOSE [Concomitant]
  14. LEVOTHYROX [Concomitant]
  15. TRILEPTAL [Concomitant]
  16. THERALENE [Concomitant]
     Indication: SEDATION
     Route: 048
  17. KARDEGIC [Concomitant]
     Indication: COAGULOPATHY
     Route: 048

REACTIONS (3)
  - Cardiopulmonary failure [Fatal]
  - Cerebrovascular accident [Fatal]
  - Acute pulmonary oedema [Unknown]
